FAERS Safety Report 5711894-1 (Version None)
Quarter: 2008Q2

REPORT INFORMATION
  Report Type: 
  Country: None (occurrence: None)
  Receive Date: 20080421
  Receipt Date: 20080414
  Transmission Date: 20081010
  Serious: Yes (Hospitalization)
  Sender: FDA-Public Use
  Company Number: US-BOEHRINGER INGELHEIM GMBH, GERMANY-2008-BP-04832BP

PATIENT
  Sex: Male

DRUGS (15)
  1. SPIRIVA [Suspect]
     Indication: CHRONIC OBSTRUCTIVE PULMONARY DISEASE
     Route: 055
     Dates: start: 20010101
  2. SPIRIVA [Suspect]
     Indication: EMPHYSEMA
  3. SPIRIVA [Suspect]
     Indication: BRONCHITIS CHRONIC
  4. PREDNISONE [Concomitant]
     Indication: CHRONIC OBSTRUCTIVE PULMONARY DISEASE
  5. ADVAIR DISKUS 100/50 [Concomitant]
     Indication: LUNG DISORDER
  6. ALBUTEROL [Concomitant]
     Indication: LUNG DISORDER
  7. XOPENEX [Concomitant]
     Indication: LUNG DISORDER
  8. NASONEX [Concomitant]
  9. FUROSEMIDE [Concomitant]
  10. FOSAMAX [Concomitant]
     Indication: OSTEOPOROSIS
  11. CALCIUM VITAMIN PLUS D [Concomitant]
     Indication: OSTEOPOROSIS
  12. AMLODIPINE [Concomitant]
     Indication: CARDIAC DISORDER
  13. ACYCLOVIR [Concomitant]
     Indication: VIRAL INFECTION
  14. ALPHAGAN P [Concomitant]
     Indication: EYE DISORDER
  15. XALATAN O [Concomitant]
     Indication: EYE DISORDER

REACTIONS (3)
  - ASTHENIA [None]
  - DYSPNOEA [None]
  - PNEUMONIA [None]
